FAERS Safety Report 19940476 (Version 1)
Quarter: 2021Q4

REPORT INFORMATION
  Report Type: Spontaneous
  Country: ES (occurrence: ES)
  Receive Date: 20211011
  Receipt Date: 20211011
  Transmission Date: 20220303
  Serious: Yes (Other)
  Sender: FDA-Public Use
  Company Number: None

PATIENT
  Age: 32 Year
  Sex: Female

DRUGS (3)
  1. ACETAMINOPHEN [Suspect]
     Active Substance: ACETAMINOPHEN
     Indication: Pain
     Dosage: 1 GRAM, Q8H (1-1-1)
     Route: 048
     Dates: start: 20180704, end: 20180706
  2. BEMIPARIN [Suspect]
     Active Substance: BEMIPARIN
     Indication: Thrombosis prophylaxis
     Dosage: UNK (3500UI / 24H)
     Route: 058
     Dates: start: 20180704, end: 20180706
  3. CEFTRIAXONE [Suspect]
     Active Substance: CEFTRIAXONE
     Indication: Pyelonephritis
     Dosage: 2 GRAM (2GR DIA)
     Route: 042
     Dates: start: 20180703, end: 20180706

REACTIONS (1)
  - Hepatitis [Recovered/Resolved]

NARRATIVE: CASE EVENT DATE: 20180705
